FAERS Safety Report 6014134-1 (Version None)
Quarter: 2008Q4

REPORT INFORMATION
  Report Type: 
  Country: None (occurrence: None)
  Receive Date: 20081219
  Receipt Date: 20080107
  Transmission Date: 20090506
  Serious: No
  Sender: FDA-Public Use
  Company Number: A0701673A

PATIENT
  Age: 66 Year
  Sex: Male

DRUGS (6)
  1. AVODART [Suspect]
     Indication: BENIGN PROSTATIC HYPERPLASIA
     Dosage: .5MG PER DAY
     Route: 048
     Dates: start: 20071001, end: 20080101
  2. TRAZODONE HCL [Concomitant]
  3. XANAX [Concomitant]
  4. NEXIUM [Concomitant]
  5. FOLIC ACID [Concomitant]
  6. ZOCOR [Concomitant]

REACTIONS (2)
  - URINARY TRACT INFECTION [None]
  - URINE ODOUR ABNORMAL [None]
